FAERS Safety Report 6384040-1 (Version None)
Quarter: 2009Q3

REPORT INFORMATION
  Report Type: 
  Country: None (occurrence: None)
  Receive Date: 20090928
  Receipt Date: 20090917
  Transmission Date: 20100115
  Serious: Yes (Congenital Anomaly)
  Sender: FDA-Public Use
  Company Number: 2009SP026073

PATIENT
  Age: 1 Year

DRUGS (3)
  1. DEXAMETHASONE [Suspect]
     Indication: DRUG EXPOSURE DURING PREGNANCY
     Dosage: TRPL
     Route: 064
  2. ABILIFY [Suspect]
     Indication: DRUG EXPOSURE DURING PREGNANCY
     Dosage: TRPL
     Route: 064
  3. DEXAMFETAMINE SULFATE (DEXAMFETAMINE SULFATE) [Suspect]
     Indication: DRUG EXPOSURE DURING PREGNANCY
     Dosage: TRPL
     Route: 064

REACTIONS (5)
  - CONGENITAL ANOMALY [None]
  - DYSMORPHISM [None]
  - HEAD DEFORMITY [None]
  - LIMB MALFORMATION [None]
  - MATERNAL DRUGS AFFECTING FOETUS [None]
